FAERS Safety Report 4488831-3 (Version None)
Quarter: 2004Q4

REPORT INFORMATION
  Report Type: 
  Country: None (occurrence: None)
  Receive Date: 20041029
  Receipt Date: 20041021
  Transmission Date: 20050328
  Serious: Yes (Hospitalization)
  Sender: FDA-Public Use
  Company Number: DE-MERCK-0410DEU00632

PATIENT
  Age: 61 Year
  Sex: Female

DRUGS (2)
  1. VIOXX [Suspect]
     Indication: PAIN
     Route: 048
     Dates: start: 20040501, end: 20040601
  2. VIOXX [Suspect]
     Indication: INJURY
     Route: 048
     Dates: start: 20040501, end: 20040601

REACTIONS (4)
  - DIZZINESS [None]
  - DRUG INEFFECTIVE [None]
  - PULMONARY EMBOLISM [None]
  - THROMBOSIS [None]
